FAERS Safety Report 6076107-2 (Version None)
Quarter: 2009Q1

REPORT INFORMATION
  Report Type: 
  Country: None (occurrence: None)
  Receive Date: 20090212
  Receipt Date: 20090203
  Transmission Date: 20090719
  Serious: Yes (Hospitalization)
  Sender: FDA-Public Use
  Company Number: RU-WYE-H02210908

PATIENT
  Sex: Female

DRUGS (2)
  1. EFFEXOR XR [Suspect]
     Indication: DEPRESSION
     Route: 048
     Dates: start: 20080104
  2. ZOPICLONE [Suspect]
     Route: 048
     Dates: start: 20080104

REACTIONS (2)
  - FALL [None]
  - JOINT DISLOCATION [None]
